FAERS Safety Report 17262413 (Version 1)
Quarter: 2020Q1

REPORT INFORMATION
  Report Type: Spontaneous
  Country: HU (occurrence: HU)
  Receive Date: 20200113
  Receipt Date: 20200113
  Transmission Date: 20200409
  Serious: Yes (Hospitalization, Other)
  Sender: FDA-Public Use
  Company Number: NVSC2020HU004297

PATIENT
  Age: 15 Year
  Sex: Female

DRUGS (3)
  1. VALPROATE [Suspect]
     Active Substance: VALPROIC ACID
     Indication: JUVENILE MYOCLONIC EPILEPSY
     Dosage: 600 MG
     Route: 065
  2. TOPIRAMATE. [Concomitant]
     Active Substance: TOPIRAMATE
     Indication: EPILEPSY
     Dosage: 150 MG, QD
     Route: 065
     Dates: start: 201809
  3. LAMOTRIGINE. [Suspect]
     Active Substance: LAMOTRIGINE
     Indication: EPILEPSY
     Dosage: 75 MG, BID
     Route: 065
     Dates: start: 201812

REACTIONS (7)
  - Rash erythematous [Unknown]
  - Nausea [Unknown]
  - Myoclonic epilepsy [Recovering/Resolving]
  - Drug ineffective [Unknown]
  - Pleurisy [Unknown]
  - Hepatosplenomegaly [Unknown]
  - Rash maculo-papular [Unknown]
